FAERS Safety Report 16767166 (Version 1)
Quarter: 2019Q3

REPORT INFORMATION
  Report Type: Spontaneous
  Country: US (occurrence: US)
  Receive Date: 20190903
  Receipt Date: 20190903
  Transmission Date: 20191005
  Serious: No
  Sender: FDA-Public Use
  Company Number: US-PFIZER INC-2019374903

PATIENT
  Age: 55 Year
  Sex: Female
  Weight: 67.13 kg

DRUGS (2)
  1. KEYTRUDA [Concomitant]
     Active Substance: PEMBROLIZUMAB
     Indication: CLEAR CELL SARCOMA OF SOFT TISSUE
     Dosage: UNK UNK, EVERY 3 WEEKS
  2. SUTENT [Suspect]
     Active Substance: SUNITINIB MALATE
     Indication: CLEAR CELL SARCOMA OF SOFT TISSUE
     Dosage: 37.5 MG, 1X/DAY
     Route: 048
     Dates: start: 201902

REACTIONS (3)
  - Off label use [Unknown]
  - Neoplasm progression [Unknown]
  - Product use in unapproved indication [Unknown]
